FAERS Safety Report 4793820-5 (Version None)
Quarter: 2005Q4

REPORT INFORMATION
  Report Type: 
  Country: None (occurrence: None)
  Receive Date: 20051006
  Receipt Date: 20051006
  Transmission Date: 20060501
  Serious: Yes (Hospitalization)
  Sender: FDA-Public Use
  Company Number: None

PATIENT
  Age: 52 Year
  Sex: Female

DRUGS (2)
  1. WARFARIN     2MG [Suspect]
     Indication: MITRAL VALVE REPLACEMENT
     Dosage: 3MG   MWF    PO
     Route: 048
  2. WARFARIN     3MG [Suspect]
     Dosage: 2MG    SSTTH   PO
     Route: 048

REACTIONS (2)
  - DYSPNOEA [None]
  - INTERNATIONAL NORMALISED RATIO INCREASED [None]
